FAERS Safety Report 17855434 (Version 11)
Quarter: 2024Q1

REPORT INFORMATION
  Report Type: Spontaneous
  Country: US (occurrence: US)
  Receive Date: 20200603
  Receipt Date: 20240226
  Transmission Date: 20240410
  Serious: No
  Sender: FDA-Public Use
  Company Number: US-PFIZER INC-2020217047

PATIENT
  Age: 71 Year
  Sex: Female

DRUGS (5)
  1. EUCRISA [Suspect]
     Active Substance: CRISABOROLE
     Indication: Psoriasis
     Dosage: APPLY TO ALL AFFECTED AREAS TWICE DAILY AS NEEDED
     Route: 061
  2. EUCRISA [Suspect]
     Active Substance: CRISABOROLE
     Dosage: APPLY THIN LAYER TO AFFECTED AREAS THREE TIMES DAILY
     Route: 061
  3. EUCRISA [Suspect]
     Active Substance: CRISABOROLE
     Dosage: EVERY OTHER DAY
     Route: 061
  4. EUCRISA [Suspect]
     Active Substance: CRISABOROLE
     Dosage: APPLY TO ALL AFFECTED AREAS TWICE A DAY AS NEEDED
     Route: 061
  5. EUCRISA [Suspect]
     Active Substance: CRISABOROLE
     Dosage: APPLY TO ALL AFFECTED AREAS TWICE A DAY AS NEEDED
     Route: 061

REACTIONS (2)
  - Off label use [Unknown]
  - Drug ineffective for unapproved indication [Unknown]
